FAERS Safety Report 9729918 (Version 3)
Quarter: 2015Q2

REPORT INFORMATION
  Report Type: Spontaneous
  Country: US (occurrence: US)
  Receive Date: 20131204
  Receipt Date: 20150630
  Transmission Date: 20150821
  Serious: Yes (Hospitalization, Disabling, Other)
  Sender: FDA-Public Use
  Company Number: US-009507513-1105USA01756

PATIENT
  Sex: Female

DRUGS (13)
  1. DARVOCET-N 100 [Concomitant]
     Active Substance: ACETAMINOPHEN\PROPOXYPHENE NAPSYLATE
     Indication: PAIN
     Dosage: 10 C Q4-6H PRN
     Route: 048
  2. FOSAMAX [Suspect]
     Active Substance: ALENDRONATE SODIUM
     Dosage: 10 MG, QD
     Route: 048
     Dates: start: 20110408
  3. ALENDRONATE SODIUM. [Suspect]
     Active Substance: ALENDRONATE SODIUM
     Indication: OSTEOPOROSIS
     Dosage: UNK
     Route: 048
     Dates: start: 2008, end: 2008
  4. HYDROCHLOROTHIAZIDE. [Concomitant]
     Active Substance: HYDROCHLOROTHIAZIDE
     Dosage: 25 MG, QD
     Route: 048
  5. OS-CAL (CALCIUM (UNSPECIFIED) (+) VITAMIN D (UNSPECIFIED)) [Concomitant]
     Dosage: 1 TAB, TID
     Route: 048
  6. FOSAMAX [Suspect]
     Active Substance: ALENDRONATE SODIUM
     Indication: OSTEOPOROSIS
     Dosage: UNK
     Route: 048
     Dates: start: 1997, end: 2008
  7. FOSAMAX [Suspect]
     Active Substance: ALENDRONATE SODIUM
     Dosage: 70 MG, QW
     Route: 048
     Dates: start: 20030627, end: 20081117
  8. VITAMINS (UNSPECIFIED) [Concomitant]
     Active Substance: VITAMINS
     Dosage: 1 TAB, QD
     Route: 048
  9. ALENDRONATE SODIUM. [Suspect]
     Active Substance: ALENDRONATE SODIUM
     Dosage: 70 MG, UNK
     Route: 048
     Dates: start: 20080303, end: 20110730
  10. NIFEDIPINE. [Concomitant]
     Active Substance: NIFEDIPINE
     Dosage: 30 MG, QD
     Route: 048
  11. SIMVASTATIN. [Concomitant]
     Active Substance: SIMVASTATIN
     Dosage: 20 MG, QPM
     Route: 048
  12. LIDEX [Concomitant]
     Active Substance: FLUOCINONIDE
     Dosage: 0.05 %, BID
  13. ASPIRIN. [Concomitant]
     Active Substance: ASPIRIN
     Dosage: 81 MG, QD
     Route: 048

REACTIONS (23)
  - Haemoglobin decreased [Recovered/Resolved]
  - Back pain [Unknown]
  - Thrombocytosis [Unknown]
  - Chest pain [Unknown]
  - Hypertension [Unknown]
  - Leukocytosis [Unknown]
  - Anaemia [Unknown]
  - Open reduction of fracture [Unknown]
  - Low turnover osteopathy [Not Recovered/Not Resolved]
  - Osteoporosis [Not Recovered/Not Resolved]
  - Herpes zoster [Unknown]
  - Ankle fracture [Unknown]
  - Femur fracture [Not Recovered/Not Resolved]
  - Bundle branch block left [Unknown]
  - Haematocrit decreased [Unknown]
  - Hypercholesterolaemia [Unknown]
  - Intramedullary rod insertion [Unknown]
  - Hip fracture [Not Recovered/Not Resolved]
  - Hip arthroplasty [Unknown]
  - Arthralgia [Unknown]
  - Osteoarthritis [Unknown]
  - Femur fracture [Not Recovered/Not Resolved]
  - Musculoskeletal pain [Recovering/Resolving]

NARRATIVE: CASE EVENT DATE: 20081113
